FAERS Safety Report 17289787 (Version 6)
Quarter: 2020Q3

REPORT INFORMATION
  Report Type: Report from Study
  Country: None (occurrence: US)
  Receive Date: 20200120
  Receipt Date: 20200818
  Transmission Date: 20201102
  Serious: Yes (Hospitalization, Other)
  Sender: FDA-Public Use
  Company Number: US-ABBVIE-20K-163-3239664-00

PATIENT
  Age: 68 Year
  Sex: Female

DRUGS (4)
  1. AMITRIPTYLINE [Concomitant]
     Active Substance: AMITRIPTYLINE
     Indication: PRODUCT USED FOR UNKNOWN INDICATION
  2. HUMIRA [Suspect]
     Active Substance: ADALIMUMAB
     Route: 058
  3. PREDNISONE. [Concomitant]
     Active Substance: PREDNISONE
     Indication: PRODUCT USED FOR UNKNOWN INDICATION
  4. HUMIRA [Suspect]
     Active Substance: ADALIMUMAB
     Indication: PSORIATIC ARTHROPATHY
     Route: 058
     Dates: start: 20190730, end: 20191217

REACTIONS (15)
  - Insomnia [Unknown]
  - Pain [Recovering/Resolving]
  - Injection site bruising [Unknown]
  - Psoriasis [Unknown]
  - Joint range of motion decreased [Recovered/Resolved]
  - Loss of personal independence in daily activities [Unknown]
  - Increased tendency to bruise [Unknown]
  - Pain in extremity [Unknown]
  - Depression [Unknown]
  - Gait disturbance [Recovering/Resolving]
  - Musculoskeletal disorder [Recovered/Resolved]
  - Spinal stenosis [Recovering/Resolving]
  - Trigger finger [Recovering/Resolving]
  - Anxiety [Unknown]
  - Arthropathy [Recovering/Resolving]

NARRATIVE: CASE EVENT DATE: 2019
